FAERS Safety Report 12731347 (Version 1)
Quarter: 2016Q3

REPORT INFORMATION
  Report Type: Report from Study
  Country: AR (occurrence: AR)
  Receive Date: 20160912
  Receipt Date: 20160912
  Transmission Date: 20161109
  Serious: Yes (Hospitalization, Other)
  Sender: FDA-Public Use
  Company Number: AR-BRISTOL-MYERS SQUIBB COMPANY-BMS-2015-014727

PATIENT
  Age: 77 Year
  Sex: Female

DRUGS (4)
  1. ABATACEPT [Suspect]
     Active Substance: ABATACEPT
     Dosage: UNK, QWK
     Route: 058
     Dates: start: 20160830
  2. ABATACEPT [Suspect]
     Active Substance: ABATACEPT
     Dosage: UNK, QWK
     Route: 058
     Dates: start: 20130104, end: 20160816
  3. ABATACEPT [Suspect]
     Active Substance: ABATACEPT
     Indication: RHEUMATOID ARTHRITIS
     Dosage: UNK, QWK
     Route: 058
     Dates: start: 20130103
  4. ABATACEPT [Suspect]
     Active Substance: ABATACEPT
     Dosage: UNK, QWK
     Route: 058
     Dates: start: 20160816, end: 20160829

REACTIONS (4)
  - Knee arthroplasty [Recovering/Resolving]
  - Osteoarthritis [Recovering/Resolving]
  - Visual impairment [Recovering/Resolving]
  - Cataract [Unknown]

NARRATIVE: CASE EVENT DATE: 20141101
